FAERS Safety Report 23405081 (Version 4)
Quarter: 2025Q4

REPORT INFORMATION
  Report Type: Report from Study
  Country: US (occurrence: US)
  Receive Date: 20240116
  Receipt Date: 20251231
  Transmission Date: 20260118
  Serious: Yes (Hospitalization, Other)
  Sender: AMGEN
  Company Number: US-AMGEN-USASP2024007495

PATIENT
  Age: 80 Year
  Sex: Female

DRUGS (3)
  1. TAVNEOS [Suspect]
     Active Substance: AVACOPAN
     Indication: Granulomatosis with polyangiitis
     Dosage: 5 DOSAGE FORM, BID (TAKE 2 CAPS BY MOUTH IN THE MORNING AND THEN TAKE 3 CAPS AT BEDTIME)
     Route: 048
     Dates: start: 20220120
  2. TAVNEOS [Suspect]
     Active Substance: AVACOPAN
     Dosage: 30 MILLIGRAM, BID (TAKE 3 CAPSULES (30 MG) BY MOUTH TWICE DAILY WITH FOOD)
     Route: 048
  3. TAVNEOS [Suspect]
     Active Substance: AVACOPAN
     Dosage: UNK
     Route: 065

REACTIONS (8)
  - Renal failure [Unknown]
  - White blood cell count decreased [Unknown]
  - Osteoporosis [Unknown]
  - Headache [Unknown]
  - Off label use [Unknown]
  - Cough [Unknown]
  - Cognitive disorder [Unknown]
  - Proteinuria [Unknown]

NARRATIVE: CASE EVENT DATE: 20220120
